FAERS Safety Report 19319029 (Version 2)
Quarter: 2021Q4

REPORT INFORMATION
  Report Type: Spontaneous
  Country: US (occurrence: None)
  Receive Date: 20210527
  Receipt Date: 20211111
  Transmission Date: 20220304
  Serious: Yes (Hospitalization, Other)
  Sender: FDA-Public Use
  Company Number: 2021A464415

PATIENT
  Age: 28 Year
  Sex: Female

DRUGS (3)
  1. QUETIAPINE [Interacting]
     Active Substance: QUETIAPINE
     Route: 048
  2. QUETIAPINE [Interacting]
     Active Substance: QUETIAPINE
     Dosage: 400 MG
     Route: 048
  3. GRAPEFRUIT JUICE [Interacting]
     Active Substance: GRAPEFRUIT JUICE
     Dosage: DRINKING APPROXIMATELY 1 GALLON OF GRAPEFRUIT JUICE IN THE 24 HOURS BEFORE PRESENTATION AS PART O...
     Route: 048

REACTIONS (18)
  - Food interaction [Unknown]
  - Toxicity to various agents [Unknown]
  - Antipsychotic drug level increased [Unknown]
  - Electrocardiogram QT prolonged [Recovered/Resolved]
  - Mental status changes [Recovered/Resolved]
  - Lactic acidosis [Recovered/Resolved]
  - Nausea [Recovered/Resolved]
  - Anxiety [Recovered/Resolved]
  - Disorganised speech [Recovered/Resolved]
  - Eye movement disorder [Recovered/Resolved]
  - Blood potassium decreased [Recovered/Resolved]
  - Blood chloride decreased [Recovered/Resolved]
  - Blood urea increased [Recovered/Resolved]
  - Tachycardia [Recovered/Resolved]
  - Vomiting [Recovered/Resolved]
  - Lethargy [Recovered/Resolved]
  - Blepharospasm [Recovered/Resolved]
  - Dyskinesia [Recovered/Resolved]
